FAERS Safety Report 11404324 (Version 1)
Quarter: 2015Q3

REPORT INFORMATION
  Report Type: Spontaneous
  Country: GB (occurrence: GB)
  Receive Date: 20150821
  Receipt Date: 20150821
  Transmission Date: 20151125
  Serious: Yes (Other)
  Sender: FDA-Public Use
  Company Number: PHHY2015GB097125

PATIENT
  Age: 11 Month
  Sex: Female
  Weight: 10 kg

DRUGS (1)
  1. CLARITHROMYCIN. [Suspect]
     Active Substance: CLARITHROMYCIN
     Indication: PERTUSSIS
     Dosage: 2.5 ML, UNK
     Route: 048
     Dates: start: 20150731, end: 20150803

REACTIONS (2)
  - Balance disorder [Recovering/Resolving]
  - Dizziness [Recovering/Resolving]

NARRATIVE: CASE EVENT DATE: 20150801
